FAERS Safety Report 5622894-4 (Version None)
Quarter: 2008Q1

REPORT INFORMATION
  Report Type: 
  Country: None (occurrence: None)
  Receive Date: 20080212
  Receipt Date: 20080129
  Transmission Date: 20080703
  Serious: Yes (Hospitalization, Other)
  Sender: FDA-Public Use
  Company Number: US-ELI_LILLY_AND_COMPANY-US200801001835

PATIENT
  Sex: Female
  Weight: 63.945 kg

DRUGS (11)
  1. TERIPARATIDE [Suspect]
     Indication: OSTEOPOROSIS
     Dosage: 20 UG, DAILY (1/D)
     Route: 058
     Dates: start: 20060823, end: 20071111
  2. SYNTHROID [Concomitant]
     Indication: HYPOTHYROIDISM
  3. CITRACAL [Concomitant]
     Indication: OSTEOPOROSIS
  4. MONOPRIL [Concomitant]
     Indication: HYPERTENSION
  5. ASPIRIN [Concomitant]
     Indication: PROPHYLAXIS
  6. ALEVE [Concomitant]
     Indication: OSTEOARTHRITIS
  7. PREDNISONE TAB [Concomitant]
     Indication: TEMPORAL ARTERITIS
  8. ZANTAC [Concomitant]
     Indication: GASTROOESOPHAGEAL REFLUX DISEASE
  9. NORVASC [Concomitant]
     Indication: HYPERTENSION
  10. LASIX [Concomitant]
     Indication: HYPERTENSION
  11. FOLIC ACID [Concomitant]
     Indication: SUPPLEMENTATION THERAPY

REACTIONS (2)
  - LEIOMYOSARCOMA METASTATIC [None]
  - UTERINE LEIOMYOMA [None]
